FAERS Safety Report 6645025-0 (Version None)
Quarter: 2010Q1

REPORT INFORMATION
  Report Type: 
  Country: None (occurrence: None)
  Receive Date: 20100322
  Receipt Date: 20100312
  Transmission Date: 20100710
  Serious: Yes (Other)
  Sender: FDA-Public Use
  Company Number: FR-ABBOTT-10P-056-0626607-00

PATIENT
  Age: 48 Year
  Sex: Female
  Weight: 49 kg

DRUGS (5)
  1. DEPAKENE [Suspect]
     Indication: MIGRAINE
     Route: 048
     Dates: start: 20090828, end: 20091211
  2. DEPAKENE [Suspect]
     Indication: OFF LABEL USE
  3. ISOPTIN [Concomitant]
     Indication: PRINZMETAL ANGINA
  4. LUTENYL [Concomitant]
     Indication: CONTRACEPTION
  5. KETOPROFEN [Concomitant]
     Indication: MIGRAINE

REACTIONS (8)
  - ABDOMINAL PAIN UPPER [None]
  - ALANINE AMINOTRANSFERASE INCREASED [None]
  - ASPARTATE AMINOTRANSFERASE INCREASED [None]
  - ASTHENIA [None]
  - HEPATOCELLULAR INJURY [None]
  - NAUSEA [None]
  - OFF LABEL USE [None]
  - URINE COLOUR ABNORMAL [None]
